FAERS Safety Report 9525395 (Version 1)
Quarter: 2013Q3

REPORT INFORMATION
  Report Type: Spontaneous
  Country: US (occurrence: None)
  Receive Date: 20130913
  Receipt Date: 20130913
  Transmission Date: 20140515
  Serious: Yes (Hospitalization)
  Sender: FDA-Public Use
  Company Number: None

PATIENT
  Age: 66 Year
  Sex: Male

DRUGS (1)
  1. BACLOFEN [Suspect]
     Indication: MUSCLE RELAXANT THERAPY
     Dosage: 5 MG  BID  PO
     Route: 048
     Dates: start: 20130627, end: 20130909

REACTIONS (2)
  - Confusional state [None]
  - Mental status changes [None]
